FAERS Safety Report 16992712 (Version 1)
Quarter: 2019Q4

REPORT INFORMATION
  Report Type: Spontaneous
  Country: US (occurrence: US)
  Receive Date: 20191104
  Receipt Date: 20191104
  Transmission Date: 20200122
  Serious: No
  Sender: FDA-Public Use
  Company Number: None

PATIENT
  Age: 79 Year
  Sex: Male
  Weight: 83 kg

DRUGS (1)
  1. HEPARIN SODIUM FOR INJECTION [Suspect]
     Active Substance: HEPARIN SODIUM
     Dosage: ?          OTHER FREQUENCY:UNIT;?
     Route: 042

REACTIONS (2)
  - Product complaint [None]
  - Coagulation time shortened [None]

NARRATIVE: CASE EVENT DATE: 20191104
